FAERS Safety Report 12634145 (Version 3)
Quarter: 2016Q3

REPORT INFORMATION
  Report Type: Spontaneous
  Country: FR (occurrence: FR)
  Receive Date: 20160809
  Receipt Date: 20160921
  Transmission Date: 20161109
  Serious: Yes (Death, Other)
  Sender: FDA-Public Use
  Company Number: FR-GLAXOSMITHKLINE-FR2016GSK113802

PATIENT
  Age: 64 Year
  Sex: Male

DRUGS (8)
  1. KARDEGIC [Concomitant]
     Active Substance: ASPIRIN LYSINE
     Dosage: 160 ONE SACHET DAILY
  2. TEMERIT [Concomitant]
     Active Substance: NEBIVOLOL
     Dosage: UNK
     Dates: end: 20110901
  3. LAMICTAL [Suspect]
     Active Substance: LAMOTRIGINE
     Indication: TRANSIENT ISCHAEMIC ATTACK
     Dosage: UNK
     Route: 048
     Dates: start: 20090826, end: 20120913
  4. EBIXA [Concomitant]
     Active Substance: MEMANTINE HYDROCHLORIDE
     Dosage: 1 DF, UNK ONCE DAILY IN THE MORNING,
  5. EXELON [Concomitant]
     Active Substance: RIVASTIGMINE TARTRATE
     Dosage: 6 MG, BID
  6. EXELON [Concomitant]
     Active Substance: RIVASTIGMINE TARTRATE
  7. EXELON [Concomitant]
     Active Substance: RIVASTIGMINE TARTRATE
     Dosage: 4.5 MG, BID
  8. VASTEN [Concomitant]
     Active Substance: PRAVASTATIN SODIUM

REACTIONS (10)
  - Activities of daily living impaired [Recovered/Resolved]
  - Abasia [Recovering/Resolving]
  - General physical health deterioration [Fatal]
  - Cognitive disorder [Unknown]
  - Diarrhoea [Unknown]
  - Cardiac arrest [Fatal]
  - Off label use [Unknown]
  - Abnormal behaviour [Unknown]
  - Aphasia [Not Recovered/Not Resolved]
  - Constipation [Unknown]

NARRATIVE: CASE EVENT DATE: 2010
